FAERS Safety Report 5215906-3 (Version None)
Quarter: 2007Q1

REPORT INFORMATION
  Report Type: 
  Country: None (occurrence: None)
  Receive Date: 20070123
  Receipt Date: 20070115
  Transmission Date: 20070707
  Serious: Yes (Hospitalization)
  Sender: FDA-Public Use
  Company Number: DE-ROCHE-478330

PATIENT
  Age: 37 Year
  Sex: Male

DRUGS (10)
  1. DACLIZUMAB [Suspect]
     Route: 065
     Dates: start: 20061019, end: 20061019
  2. DACLIZUMAB [Suspect]
     Route: 065
     Dates: start: 20061029, end: 20061029
  3. FK506 [Suspect]
     Route: 048
     Dates: start: 20061019
  4. FK506 [Suspect]
     Route: 048
  5. CORTISONE ACETATE [Concomitant]
     Dates: start: 20061109
  6. URSO FALK [Concomitant]
  7. FRAGMIN [Concomitant]
  8. PANTOZOL [Concomitant]
  9. AZULFIDINE [Concomitant]
     Dates: start: 20061109
  10. CIPROBAY [Concomitant]

REACTIONS (3)
  - CROHN'S DISEASE [None]
  - HEPATIC ARTERY THROMBOSIS [None]
  - RENAL FAILURE [None]
